FAERS Safety Report 13642293 (Version 1)
Quarter: 2017Q2

REPORT INFORMATION
  Report Type: Spontaneous
  Country: US (occurrence: US)
  Receive Date: 20170612
  Receipt Date: 20170612
  Transmission Date: 20170830
  Serious: No
  Sender: FDA-Public Use
  Company Number: US-SEPTODONT-201603331

PATIENT
  Age: 48 Year
  Sex: Male
  Weight: 100 kg

DRUGS (1)
  1. SEPTOCAINE AND EPINEPHRINE [Suspect]
     Active Substance: ARTICAINE HYDROCHLORIDE\EPINEPHRINE BITARTRATE
     Indication: LOCAL ANAESTHESIA
     Dosage: INFERIOR ALVEOLAR BLOCK (IAN)/LINGUAL BLOCK COMBINATION VIA THE TRADITIONAL TECHNIQUE
     Route: 004
     Dates: start: 20160331, end: 20160331

REACTIONS (1)
  - Hypoaesthesia oral [Not Recovered/Not Resolved]
